FAERS Safety Report 20119345 (Version 1)
Quarter: 2021Q4

REPORT INFORMATION
  Report Type: Report from Study
  Country: KR (occurrence: KR)
  Receive Date: 20211126
  Receipt Date: 20211126
  Transmission Date: 20220303
  Serious: Yes (Hospitalization)
  Sender: FDA-Public Use
  Company Number: KR-CHILTERN-KR-2018-000054

PATIENT
  Age: 57 Year
  Sex: Male
  Weight: 55.4 kg

DRUGS (12)
  1. PRALSETINIB [Suspect]
     Active Substance: PRALSETINIB
     Indication: Non-small cell lung cancer
     Route: 048
     Dates: start: 20180626, end: 20180818
  2. PRALSETINIB [Suspect]
     Active Substance: PRALSETINIB
     Route: 048
     Dates: start: 20180903
  3. ELROTON [Concomitant]
     Indication: Hypertension
     Route: 048
     Dates: start: 20180710
  4. CILAZAPRIL ANHYDROUS [Concomitant]
     Active Substance: CILAZAPRIL ANHYDROUS
     Indication: Hypertension
     Dates: start: 20180710
  5. CODAEWON FORTE [Concomitant]
     Indication: Cough
     Route: 048
     Dates: start: 20180809
  6. MORPHINE HYDROCHLORIDE [Concomitant]
     Active Substance: MORPHINE HYDROCHLORIDE
     Indication: Pneumonia
     Route: 042
     Dates: start: 20180828, end: 20180828
  7. MORPHINE HYDROCHLORIDE [Concomitant]
     Active Substance: MORPHINE HYDROCHLORIDE
     Route: 042
     Dates: start: 20180823, end: 20180823
  8. UNASYN [Concomitant]
     Active Substance: AMPICILLIN SODIUM\SULBACTAM SODIUM
     Indication: Pneumonia
     Route: 042
     Dates: start: 20180823, end: 20180828
  9. TAZOPERAN [Concomitant]
     Indication: Pneumonia
     Route: 042
     Dates: start: 20180823, end: 20180902
  10. LEVOFLOXACIN [Concomitant]
     Active Substance: LEVOFLOXACIN
     Indication: Pneumonia
     Route: 042
     Dates: start: 20180828, end: 20180902
  11. PROPAL [Concomitant]
     Indication: Pneumonia
     Route: 042
     Dates: start: 20180821, end: 20180902
  12. PROPACETAMOL HYDROCHLORIDE [Concomitant]
     Active Substance: PROPACETAMOL HYDROCHLORIDE
     Indication: Pneumonia
     Route: 042
     Dates: start: 20180821, end: 20180902

REACTIONS (1)
  - Stomatitis [Recovered/Resolved with Sequelae]

NARRATIVE: CASE EVENT DATE: 20180815
